FAERS Safety Report 10229236 (Version 2)
Quarter: 2014Q4

REPORT INFORMATION
  Report Type: Spontaneous
  Country: FR (occurrence: FR)
  Receive Date: 20140611
  Receipt Date: 20141016
  Transmission Date: 20150528
  Serious: Yes (Other)
  Sender: FDA-Public Use
  Company Number: FR-BRISTOL-MYERS SQUIBB COMPANY-20994067

PATIENT
  Age: 70 Year
  Sex: Female

DRUGS (4)
  1. METFORMINE [Concomitant]
     Active Substance: METFORMIN HYDROCHLORIDE
  2. ONGLYZA [Suspect]
     Active Substance: SAXAGLIPTIN HYDROCHLORIDE
     Indication: TYPE 2 DIABETES MELLITUS
     Dosage: STOPPED 1YEAR AGO
     Route: 048
     Dates: end: 2014
  3. PERINDOPRIL ARGININE + AMLODIPINE BESILATE [Concomitant]
  4. ALTIZIDE + SPIRONOLACTONE [Concomitant]

REACTIONS (5)
  - Cough [Recovered/Resolved]
  - Gastric disorder [Unknown]
  - Dyspepsia [Unknown]
  - Respiratory tract inflammation [Unknown]
  - Oropharyngeal discomfort [Recovered/Resolved]
